FAERS Safety Report 14482976 (Version 1)
Quarter: 2018Q1

REPORT INFORMATION
  Report Type: Report from Study
  Country: RO (occurrence: RO)
  Receive Date: 20180203
  Receipt Date: 20180203
  Transmission Date: 20180509
  Serious: Yes (Other)
  Sender: FDA-Public Use
  Company Number: RO-AUROBINDO-AUR-APL-2018-004800

PATIENT

DRUGS (6)
  1. RIBAVIRIN CAPSULE [Suspect]
     Active Substance: RIBAVIRIN
     Indication: HEPATIC CIRRHOSIS
     Dosage: ()
     Route: 065
  2. EXVIERA [Concomitant]
     Active Substance: DASABUVIR
     Indication: CHRONIC HEPATITIS C
  3. RIBAVIRIN CAPSULE [Suspect]
     Active Substance: RIBAVIRIN
     Indication: CHRONIC HEPATITIS C
     Dosage: ()
     Route: 048
  4. VIEKIRAX [Concomitant]
     Active Substance: OMBITASVIR\PARITAPREVIR\RITONAVIR
     Indication: HEPATIC CIRRHOSIS
     Dosage: ()
  5. VIEKIRAX [Concomitant]
     Active Substance: OMBITASVIR\PARITAPREVIR\RITONAVIR
     Indication: CHRONIC HEPATITIS C
     Dosage: 2 TABLETS IN A SINGLE DAILY DOSE(PARITAPREVIR 75MG BOOSTED WITH RITONAVIR 50MG AND OMBITASVIR 12.5MG
     Route: 048
  6. EXVIERA [Concomitant]
     Active Substance: DASABUVIR
     Indication: HEPATIC CIRRHOSIS
     Dosage: TWICE-DAILY ADMINISTRATION (2)
     Route: 065

REACTIONS (1)
  - Bilirubin conjugated increased [Unknown]
